FAERS Safety Report 25129399 (Version 1)
Quarter: 2025Q1

REPORT INFORMATION
  Report Type: Spontaneous
  Country: CA (occurrence: US)
  Receive Date: 20250327
  Receipt Date: 20250327
  Transmission Date: 20250408
  Serious: Yes (Death, Hospitalization, Other)
  Sender: Kenvue
  Company Number: CA-KENVUE-20250306082

PATIENT

DRUGS (1)
  1. ACETAMINOPHEN [Suspect]
     Active Substance: ACETAMINOPHEN
     Indication: Product used for unknown indication
     Route: 065

REACTIONS (10)
  - Acute hepatic failure [Fatal]
  - Toxicity to various agents [Fatal]
  - Arrhythmia [Fatal]
  - Infection [Fatal]
  - Septic shock [Fatal]
  - Gastrointestinal haemorrhage [Fatal]
  - Haemorrhage [Fatal]
  - Brain oedema [Fatal]
  - Seizure [Fatal]
  - Acute respiratory distress syndrome [Fatal]
